FAERS Safety Report 7491915-9 (Version None)
Quarter: 2011Q1

REPORT INFORMATION
  Report Type: 
  Country: None (occurrence: None)
  Receive Date: 20110318
  Receipt Date: 20100813
  Transmission Date: 20110831
  Serious: Yes (Other)
  Sender: FDA-Public Use
  Company Number: 2-0810-62

PATIENT
  Sex: Female

DRUGS (2)
  1. DERMA-SMOOTHE/FS [Suspect]
     Indication: BURNING SENSATION
     Dosage: TOPICAL
     Route: 061
  2. DERMA-SMOOTHE/FS [Suspect]
     Indication: PRURITUS
     Dosage: TOPICAL
     Route: 061

REACTIONS (1)
  - CONDITION AGGRAVATED [None]
